FAERS Safety Report 9858731 (Version 1)
Quarter: 2014Q1

REPORT INFORMATION
  Report Type: Report from Study
  Country: CN (occurrence: CN)
  Receive Date: 20140131
  Receipt Date: 20140131
  Transmission Date: 20141002
  Serious: Yes (Death)
  Sender: FDA-Public Use
  Company Number: CN-ASTRAZENECA-2014SE05896

PATIENT
  Age: 56 Year
  Sex: Female

DRUGS (1)
  1. LIDOCAINE [Suspect]
     Route: 040

REACTIONS (1)
  - Ventricular fibrillation [Fatal]
